FAERS Safety Report 5448499-6 (Version None)
Quarter: 2007Q3

REPORT INFORMATION
  Report Type: 
  Country: None (occurrence: None)
  Receive Date: 20070911
  Receipt Date: 20070831
  Transmission Date: 20080115
  Serious: Yes (Hospitalization)
  Sender: FDA-Public Use
  Company Number: US-ELI_LILLY_AND_COMPANY-US200708003661

PATIENT
  Age: 73 Year
  Sex: Male

DRUGS (5)
  1. FORTEO [Suspect]
     Dosage: UNK, UNK
     Dates: start: 20070804, end: 20070816
  2. GLYBURIDE [Concomitant]
     Indication: DIABETES MELLITUS
  3. SYNTHROID [Concomitant]
  4. METFORMIN HCL [Concomitant]
     Indication: DIABETES MELLITUS
  5. XANAX [Concomitant]
     Indication: NERVOUSNESS

REACTIONS (1)
  - LUNG DISORDER [None]
